FAERS Safety Report 5130904-6 (Version None)
Quarter: 2006Q4

REPORT INFORMATION
  Report Type: 
  Country: None (occurrence: None)
  Receive Date: 20061013
  Receipt Date: 20050531
  Transmission Date: 20070319
  Serious: Yes (Hospitalization, Other)
  Sender: FDA-Public Use
  Company Number: 2005081928

PATIENT
  Age: 59 Year
  Sex: Female
  Weight: 72.5755 kg

DRUGS (5)
  1. BEXTRA [Suspect]
     Indication: ARTHRITIS
     Dosage: 10 MG (10 MG, 1 IN 1 D), ORAL
     Route: 048
     Dates: start: 20050215, end: 20050407
  2. HYOSCYAMINE [Concomitant]
  3. DETROL LA [Concomitant]
  4. ALPRAZOLAM [Concomitant]
  5. SPIRIVA (CALAMINE, CAMPHOR, DIPHENHYDRAMINE) [Concomitant]

REACTIONS (6)
  - CARDIAC DISORDER [None]
  - HYPERHIDROSIS [None]
  - MYOCARDIAL ISCHAEMIA [None]
  - RENAL HAEMORRHAGE [None]
  - URINARY BLADDER HAEMORRHAGE [None]
  - VENOUS OCCLUSION [None]
